FAERS Safety Report 12411650 (Version 2)
Quarter: 2016Q2

REPORT INFORMATION
  Report Type: Spontaneous
  Country: JP (occurrence: JP)
  Receive Date: 20160527
  Receipt Date: 20160622
  Transmission Date: 20160815
  Serious: Yes (Hospitalization)
  Sender: FDA-Public Use
  Company Number: JP-BEH-2016063082

PATIENT
  Age: 9 Month
  Sex: Male
  Weight: 4.96 kg

DRUGS (14)
  1. PROGRAF [Concomitant]
     Active Substance: TACROLIMUS\TACROLIMUS ANHYDROUS
     Indication: PROPHYLAXIS AGAINST TRANSPLANT REJECTION
  2. FUNGUARD [Concomitant]
     Active Substance: MICAFUNGIN SODIUM
     Indication: FUNGAL INFECTION
     Dosage: 15 - 30 MG
     Route: 042
     Dates: start: 20160412, end: 20160419
  3. HIZENTRA [Suspect]
     Active Substance: HUMAN IMMUNOGLOBULIN G
     Indication: HYPOGAMMAGLOBULINAEMIA
     Dosage: 200 MG/KG
     Route: 058
     Dates: start: 20160412, end: 20160504
  4. SOLU-MEDROL [Concomitant]
     Active Substance: METHYLPREDNISOLONE SODIUM SUCCINATE
     Route: 042
     Dates: start: 20160412, end: 20160412
  5. SOLU-MEDROL [Concomitant]
     Active Substance: METHYLPREDNISOLONE SODIUM SUCCINATE
     Route: 042
     Dates: start: 20160418, end: 20160418
  6. SOLU-MEDROL [Concomitant]
     Active Substance: METHYLPREDNISOLONE SODIUM SUCCINATE
     Route: 042
     Dates: start: 20160415, end: 20160415
  7. VALIXA [Concomitant]
     Active Substance: VALGANCICLOVIR
     Route: 048
  8. ALLOID G [Concomitant]
     Active Substance: SODIUM ALGINATE
     Route: 048
  9. SOLU-MEDROL [Concomitant]
     Active Substance: METHYLPREDNISOLONE SODIUM SUCCINATE
     Indication: PROPHYLAXIS AGAINST TRANSPLANT REJECTION
     Route: 042
     Dates: start: 20160411, end: 20160411
  10. UNASYN [Concomitant]
     Active Substance: AMPICILLIN SODIUM\SULBACTAM SODIUM
     Indication: INFECTION
     Route: 042
     Dates: start: 20160409, end: 20160419
  11. BAKTAR [Concomitant]
     Active Substance: SULFAMETHOXAZOLE\TRIMETHOPRIM
     Route: 048
  12. PROSTAGLANDINE [Concomitant]
     Indication: CARDIOVASCULAR EVENT PROPHYLAXIS
     Dosage: 0.005
     Route: 042
     Dates: start: 20160412, end: 20160421
  13. SOLU-MEDROL [Concomitant]
     Active Substance: METHYLPREDNISOLONE SODIUM SUCCINATE
     Route: 042
     Dates: start: 20160413, end: 20160413
  14. URSO [Concomitant]
     Active Substance: URSODIOL
     Route: 048

REACTIONS (5)
  - Infection [Recovered/Resolved]
  - Transplant rejection [Recovered/Resolved]
  - Candida infection [Recovered/Resolved]
  - Blood beta-D-glucan increased [Recovered/Resolved]
  - Abdominal abscess [Recovered/Resolved]

NARRATIVE: CASE EVENT DATE: 20160418
